FAERS Safety Report 6558813-6 (Version None)
Quarter: 2010Q1

REPORT INFORMATION
  Report Type: 
  Country: None (occurrence: None)
  Receive Date: 20100129
  Receipt Date: 20100118
  Transmission Date: 20100710
  Serious: Yes (Other)
  Sender: FDA-Public Use
  Company Number: PHHY2010JP03703

PATIENT
  Age: 78 Year
  Sex: Male

DRUGS (3)
  1. DIOVAN [Suspect]
     Indication: HYPERTENSION
     Dosage: 80 MG DAILY
     Route: 048
     Dates: start: 20091118, end: 20100118
  2. ASPIRIN [Concomitant]
     Dosage: UNK
  3. ALOSITOL [Concomitant]
     Route: 048

REACTIONS (3)
  - HYPOAESTHESIA [None]
  - LEUKOPENIA [None]
  - THROMBOCYTOPENIA [None]
